FAERS Safety Report 14996137 (Version 1)
Quarter: 2018Q2

REPORT INFORMATION
  Report Type: Spontaneous
  Country: US (occurrence: US)
  Receive Date: 20180611
  Receipt Date: 20180611
  Transmission Date: 20180711
  Serious: Yes (Death, Other)
  Sender: FDA-Public Use
  Company Number: US-PFIZER INC-2018235642

PATIENT
  Age: 68 Year
  Sex: Male
  Weight: 107.9 kg

DRUGS (2)
  1. VFEND [Suspect]
     Active Substance: VORICONAZOLE
     Dosage: ONE 200MG TABLET ONCE DAILY BY MOUTH AND THREE 50MG TABLETS ONCE DAILY BY MOUTH
     Route: 048
     Dates: end: 20180525
  2. VFEND [Suspect]
     Active Substance: VORICONAZOLE
     Dosage: ONE 200MG TABLET ONCE DAILY BY MOUTH AND THREE 50MG TABLETS ONCE DAILY BY MOUTH
     Route: 048
     Dates: start: 201712

REACTIONS (1)
  - Leukaemia [Fatal]

NARRATIVE: CASE EVENT DATE: 201611
